FAERS Safety Report 10405097 (Version 1)
Quarter: 2014Q3

REPORT INFORMATION
  Report Type: Spontaneous
  Country: US (occurrence: None)
  Receive Date: 20140819
  Receipt Date: 20140819
  Transmission Date: 20150326
  Serious: No
  Sender: FDA-Public Use
  Company Number: None

PATIENT
  Sex: Male
  Weight: 102.06 kg

DRUGS (5)
  1. HIGH BLOOD PRESSURE [Concomitant]
  2. VITAMINS [Concomitant]
     Active Substance: VITAMINS
  3. ANDROGEL [Suspect]
     Active Substance: TESTOSTERONE
     Indication: BLOOD TESTOSTERONE DECREASED
     Dosage: ONE TIME A DAY ON THE SKIN
     Dates: start: 2002, end: 201404
  4. ALLERGIC ITCH RELIEF [Concomitant]
     Active Substance: DIPHENHYDRAMINE HYDROCHLORIDE\ZINC ACETATE
  5. FOLIC ACID. [Concomitant]
     Active Substance: FOLIC ACID

REACTIONS (2)
  - Skin discolouration [None]
  - Gynaecomastia [None]
